FAERS Safety Report 8298854 (Version 3)
Quarter: 2013Q3

REPORT INFORMATION
  Report Type: Spontaneous
  Country: US (occurrence: US)
  Receive Date: 20111219
  Receipt Date: 20130809
  Transmission Date: 20140515
  Serious: Yes (Other)
  Sender: FDA-Public Use
  Company Number: US-ASTRAZENECA-2010SE55861

PATIENT
  Age: 70 Year
  Sex: Female
  Weight: 79.8 kg

DRUGS (28)
  1. GENERIC EFFEXOR [Concomitant]
     Indication: DEPRESSION
     Dosage: GENERIC, 150 MG
  2. CLONAZEPAM [Concomitant]
     Indication: ANXIETY
  3. LEVOTHYROXINE [Concomitant]
     Indication: HYPOTHYROIDISM
  4. LORATADINE [Concomitant]
     Indication: MULTIPLE ALLERGIES
     Dates: start: 2006
  5. VITAMIN D3 [Concomitant]
  6. LYRICA [Concomitant]
     Indication: FIBROMYALGIA
  7. LYRICA [Concomitant]
     Indication: NEUROPATHY PERIPHERAL
  8. MUCINEX D [Concomitant]
     Indication: EXPOSURE TO CHEMICAL POLLUTION
  9. MUCINEX D [Concomitant]
     Indication: EXPOSURE TO LEAD
  10. ASPIRIN [Concomitant]
  11. OMEGA 3 [Concomitant]
     Dosage: TID
  12. NIACIN [Concomitant]
     Indication: BLOOD CHOLESTEROL ABNORMAL
  13. B12 SHOT [Concomitant]
  14. BIOTIN [Concomitant]
     Indication: VITAMIN SUPPLEMENTATION
  15. MAGNESIUM OXIDE [Concomitant]
  16. PAXIL [Concomitant]
  17. OTHER MEDICATIONS [Concomitant]
  18. CRESTOR [Suspect]
     Indication: BLOOD CHOLESTEROL INCREASED
     Route: 048
  19. SEROQUEL [Suspect]
     Indication: SCHIZOPHRENIA
     Route: 048
  20. SEROQUEL [Suspect]
     Indication: BIPOLAR DISORDER
     Route: 048
  21. SEROQUEL [Suspect]
     Indication: SCHIZOPHRENIA
     Route: 048
  22. SEROQUEL [Suspect]
     Indication: BIPOLAR DISORDER
     Route: 048
  23. SEROQUEL [Suspect]
     Indication: SCHIZOPHRENIA
     Route: 048
  24. SEROQUEL [Suspect]
     Indication: BIPOLAR DISORDER
     Route: 048
  25. SEROQUEL [Suspect]
     Indication: SCHIZOPHRENIA
     Route: 048
  26. SEROQUEL [Suspect]
     Indication: BIPOLAR DISORDER
     Route: 048
  27. LISINOPRIL [Suspect]
     Indication: HYPERTENSION
     Route: 048
  28. PRIMIDONE [Concomitant]
     Indication: TREMOR

REACTIONS (10)
  - Nerve injury [Unknown]
  - Weight decreased [Unknown]
  - Tremor [Unknown]
  - Muscular weakness [Recovering/Resolving]
  - Insomnia [Unknown]
  - Myalgia [Recovering/Resolving]
  - Blood cholesterol increased [Unknown]
  - Myalgia [Unknown]
  - Drug dispensing error [Unknown]
  - Drug ineffective [Unknown]
